FAERS Safety Report 7941189-7 (Version None)
Quarter: 2011Q4

REPORT INFORMATION
  Report Type: 
  Country: None (occurrence: None)
  Receive Date: 20111122
  Receipt Date: 20111122
  Transmission Date: 20120403
  Serious: Yes (Life-Threatening)
  Sender: FDA-Public Use
  Company Number: None

PATIENT
  Age: 57 Year
  Sex: Female
  Weight: 78.0187 kg

DRUGS (2)
  1. CEFTRIAXONE [Suspect]
     Indication: PRODUCT USED FOR UNKNOWN INDICATION
     Dosage: UNKNOWN MULTIPLE INTER
     Dates: start: 20100501
  2. ONDANSETRON [Suspect]
     Dosage: TWICE INTRAVENOUS
     Route: 042
     Dates: start: 20100503, end: 20100505

REACTIONS (4)
  - APRAXIA [None]
  - MONOPLEGIA [None]
  - ROTATOR CUFF SYNDROME [None]
  - DRUG ADMINISTRATION ERROR [None]
